FAERS Safety Report 18493093 (Version 6)
Quarter: 2025Q3

REPORT INFORMATION
  Report Type: Report from Study
  Country: US (occurrence: US)
  Receive Date: 20201112
  Receipt Date: 20250704
  Transmission Date: 20251020
  Serious: Yes (Other)
  Sender: TAKEDA
  Company Number: US-TAKEDA-US201511176

PATIENT
  Sex: Female

DRUGS (7)
  1. HUMAN C1-ESTERASE INHIBITOR [Suspect]
     Active Substance: HUMAN C1-ESTERASE INHIBITOR
     Indication: Hereditary angioedema
  2. HUMAN C1-ESTERASE INHIBITOR [Suspect]
     Active Substance: HUMAN C1-ESTERASE INHIBITOR
  3. HUMAN C1-ESTERASE INHIBITOR [Suspect]
     Active Substance: HUMAN C1-ESTERASE INHIBITOR
  4. FIRAZYR [Suspect]
     Active Substance: ICATIBANT ACETATE
     Indication: Hereditary angioedema
  5. FIRAZYR [Suspect]
     Active Substance: ICATIBANT ACETATE
  6. TAKHZYRO [Suspect]
     Active Substance: LANADELUMAB-FLYO
     Indication: Hereditary angioedema
     Dosage: 300 MILLIGRAM, Q2WEEKS
     Dates: start: 20190524
  7. TAKHZYRO [Suspect]
     Active Substance: LANADELUMAB-FLYO
     Dosage: 300 MILLIGRAM, Q4WEEKS

REACTIONS (7)
  - COVID-19 [Recovered/Resolved]
  - Stress [Unknown]
  - Insurance issue [Recovering/Resolving]
  - Product use issue [Recovering/Resolving]
  - Product dose omission issue [Recovering/Resolving]
  - Hereditary angioedema [Unknown]
  - Urticaria [Recovered/Resolved]

NARRATIVE: CASE EVENT DATE: 20150101
